FAERS Safety Report 14721723 (Version 2)
Quarter: 2018Q3

REPORT INFORMATION
  Report Type: Spontaneous
  Country: US (occurrence: US)
  Receive Date: 20180405
  Receipt Date: 20180709
  Transmission Date: 20181010
  Serious: Yes (Other)
  Sender: FDA-Public Use
  Company Number: US-PFIZER INC-2018137663

PATIENT
  Sex: Male

DRUGS (1)
  1. XANAX [Suspect]
     Active Substance: ALPRAZOLAM
     Dosage: UNK

REACTIONS (8)
  - Speech disorder [Unknown]
  - Cardiac flutter [Unknown]
  - Somnolence [Unknown]
  - Dysarthria [Unknown]
  - Swelling face [Unknown]
  - Depression [Unknown]
  - Drug hypersensitivity [Unknown]
  - Memory impairment [Unknown]
